FAERS Safety Report 10267976 (Version 3)
Quarter: 2014Q3

REPORT INFORMATION
  Report Type: Spontaneous
  Country: US (occurrence: US)
  Receive Date: 20140630
  Receipt Date: 20140725
  Transmission Date: 20150326
  Serious: Yes (Death, Hospitalization, Other)
  Sender: FDA-Public Use
  Company Number: US-BAXTER-2014BAX033915

PATIENT
  Sex: Male

DRUGS (2)
  1. EXTRANEAL [Suspect]
     Active Substance: CALCIUM CHLORIDE\ICODEXTRIN\MAGNESIUM CHLORIDE\SODIUM CHLORIDE\SODIUM LACTATE
     Indication: PERITONEAL DIALYSIS
     Route: 033
     Dates: start: 2011, end: 20140615
  2. DIANEAL LOW CALCIUM PERITONEAL DIALYSIS SOLUTION WITH DEXTROSE [Suspect]
     Active Substance: CALCIUM CHLORIDE\DEXTROSE\MAGNESIUM CHLORIDE\SODIUM CHLORIDE\SODIUM LACTATE
     Indication: PERITONEAL DIALYSIS
     Route: 033
     Dates: start: 2011, end: 20140615

REACTIONS (13)
  - Convulsion [Unknown]
  - Blood potassium decreased [Unknown]
  - Fatigue [Unknown]
  - Nausea [Unknown]
  - Myocardial infarction [Fatal]
  - Hypoxia [Fatal]
  - Insomnia [Recovered/Resolved]
  - Anxiety [Unknown]
  - Unevaluable event [Unknown]
  - Pneumonia [Fatal]
  - Pleurisy [Fatal]
  - Asthenia [Unknown]
  - Vomiting [Unknown]

NARRATIVE: CASE EVENT DATE: 2014
